FAERS Safety Report 18883834 (Version 1)
Quarter: 2021Q1

REPORT INFORMATION
  Report Type: Report from Study
  Country: US (occurrence: US)
  Receive Date: 20210212
  Receipt Date: 20210212
  Transmission Date: 20210420
  Serious: Yes (Disabling)
  Sender: FDA-Public Use
  Company Number: US-BAUSCH-BL-2021-004971

PATIENT
  Age: 59 Year
  Sex: Female

DRUGS (1)
  1. PROLENSA [Suspect]
     Active Substance: BROMFENAC SODIUM
     Indication: EYE DISORDER
     Route: 065
     Dates: start: 2018

REACTIONS (1)
  - Disability [Not Recovered/Not Resolved]
